FAERS Safety Report 5489452-6 (Version None)
Quarter: 2007Q4

REPORT INFORMATION
  Report Type: 
  Country: None (occurrence: None)
  Receive Date: 20071016
  Receipt Date: 20071016
  Transmission Date: 20080405
  Serious: Yes (Hospitalization)
  Sender: FDA-Public Use
  Company Number: None

PATIENT
  Age: 53 Year
  Sex: Male

DRUGS (1)
  1. IMATINIB [Suspect]
     Indication: CHRONIC MYELOID LEUKAEMIA
     Dosage: 400MG  AM  PO
     Route: 048
     Dates: start: 20070904, end: 20071012

REACTIONS (2)
  - CARDIAC FAILURE CONGESTIVE [None]
  - PYREXIA [None]
